FAERS Safety Report 4320184-3 (Version None)
Quarter: 2004Q1

REPORT INFORMATION
  Report Type: 
  Country: None (occurrence: None)
  Receive Date: 20040317
  Receipt Date: 20040302
  Transmission Date: 20041129
  Serious: Yes (Other)
  Sender: FDA-Public Use
  Company Number: 3091061840

PATIENT
  Sex: Female
  Weight: 68.0396 kg

DRUGS (1)
  1. CHLORHEXIDINE GLUCONATE [Suspect]
     Indication: INFECTION PROPHYLAXIS
     Dosage: ONE TIME USE
     Dates: start: 20040301

REACTIONS (3)
  - DRY SKIN [None]
  - ERYTHEMA [None]
  - SKIN BURNING SENSATION [None]
